FAERS Safety Report 8277946-X (Version None)
Quarter: 2012Q2

REPORT INFORMATION
  Report Type: 
  Country: None (occurrence: None)
  Receive Date: 20120412
  Receipt Date: 20120405
  Transmission Date: 20120825
  Serious: Yes (Hospitalization, Disabling, Other)
  Sender: FDA-Public Use
  Company Number: US-JNJFOC-20120403323

PATIENT
  Sex: Male
  Weight: 79.38 kg

DRUGS (4)
  1. DALFAMPRIDINE [Suspect]
     Indication: GAIT DISTURBANCE
     Route: 048
     Dates: start: 20100101, end: 20120215
  2. BACLOFEN [Concomitant]
     Indication: PRODUCT USED FOR UNKNOWN INDICATION
     Route: 065
  3. TRAMADOL HCL [Suspect]
     Indication: PRODUCT USED FOR UNKNOWN INDICATION
     Route: 065
     Dates: end: 20120215
  4. AMANTADINE HCL [Concomitant]
     Indication: PRODUCT USED FOR UNKNOWN INDICATION
     Route: 065

REACTIONS (7)
  - LOSS OF CONSCIOUSNESS [None]
  - ASTHENIA [None]
  - CONVULSION [None]
  - PRESYNCOPE [None]
  - CONSTIPATION [None]
  - MULTIPLE SCLEROSIS [None]
  - ABASIA [None]
